FAERS Safety Report 5692625-0 (Version None)
Quarter: 2008Q2

REPORT INFORMATION
  Report Type: 
  Country: None (occurrence: None)
  Receive Date: 20080401
  Receipt Date: 20080326
  Transmission Date: 20081010
  Serious: Yes (Other)
  Sender: FDA-Public Use
  Company Number: 2008SP004839

PATIENT
  Age: 79 Year
  Sex: Male

DRUGS (2)
  1. TEMODAR [Suspect]
     Indication: GLIOBLASTOMA MULTIFORME
     Dosage: 135 MG; QD; PO
     Route: 048
  2. BACTRIM [Concomitant]

REACTIONS (2)
  - PNEUMONITIS [None]
  - PULMONARY OEDEMA [None]
